FAERS Safety Report 20773854 (Version 1)
Quarter: 2022Q2

REPORT INFORMATION
  Report Type: Spontaneous
  Country: US (occurrence: None)
  Receive Date: 20220429
  Receipt Date: 20220429
  Transmission Date: 20220721
  Serious: Yes (Other)
  Sender: FDA-Public Use
  Company Number: None

PATIENT
  Age: 70 Year
  Sex: Female
  Weight: 68.2 kg

DRUGS (2)
  1. SANDOSTATIN LAR DEPOT [Suspect]
     Active Substance: OCTREOTIDE ACETATE
     Indication: Pancreatic neuroendocrine tumour
     Route: 030
     Dates: start: 20200701
  2. Sandostatin LAR Depot 30mg IM [Concomitant]
     Dates: start: 20200701

REACTIONS (2)
  - Blood chromogranin A increased [None]
  - Suspected product quality issue [None]

NARRATIVE: CASE EVENT DATE: 20220106
